FAERS Safety Report 7763926-7 (Version None)
Quarter: 2011Q3

REPORT INFORMATION
  Report Type: 
  Country: None (occurrence: None)
  Receive Date: 20110921
  Receipt Date: 20110907
  Transmission Date: 20111222
  Serious: Yes (Other)
  Sender: FDA-Public Use
  Company Number: TR-RANBAXY-2011RR-46499

PATIENT
  Age: 48 Year
  Sex: Male

DRUGS (17)
  1. PSEUDOEPHEDRINE HCL [Suspect]
     Indication: PRODUCT USED FOR UNKNOWN INDICATION
     Route: 065
  2. ZYRTEC [Suspect]
     Indication: PRODUCT USED FOR UNKNOWN INDICATION
     Route: 065
  3. CARBAMAZEPINE [Suspect]
     Indication: PRODUCT USED FOR UNKNOWN INDICATION
     Route: 065
  4. TEGRETOL [Suspect]
     Indication: PRODUCT USED FOR UNKNOWN INDICATION
     Route: 065
  5. DUACT [Suspect]
     Indication: PRODUCT USED FOR UNKNOWN INDICATION
     Route: 065
  6. ALFASID [Suspect]
     Indication: SKIN TEST
     Route: 065
  7. OMNIPAQUE 140 [Suspect]
     Indication: SKIN TEST
     Route: 065
  8. ATARAX [Suspect]
     Indication: PRODUCT USED FOR UNKNOWN INDICATION
     Route: 065
  9. ZYRTEC [Suspect]
     Indication: PRURITUS
     Route: 048
  10. LANSOR [Suspect]
     Indication: PRODUCT USED FOR UNKNOWN INDICATION
     Route: 065
  11. OMNIPAQUE 140 [Suspect]
     Indication: SKIN TEST POSITIVE
  12. TETRACYCLINE [Suspect]
     Indication: PRODUCT USED FOR UNKNOWN INDICATION
     Route: 065
  13. HYDROXYZINE [Suspect]
     Indication: PRODUCT USED FOR UNKNOWN INDICATION
     Route: 065
  14. ALFASID [Suspect]
     Indication: SKIN TEST POSITIVE
  15. ERYTHROMYCIN [Suspect]
     Indication: UPPER RESPIRATORY TRACT INFECTION
     Route: 048
  16. AUGMENTIN '125' [Suspect]
     Indication: UPPER RESPIRATORY TRACT INFECTION
     Route: 048
  17. AMPICILLIN SODIUM [Suspect]
     Indication: UPPER RESPIRATORY TRACT INFECTION
     Route: 048

REACTIONS (1)
  - DRUG HYPERSENSITIVITY [None]
